FAERS Safety Report 10276499 (Version 1)
Quarter: 2014Q3

REPORT INFORMATION
  Report Type: Spontaneous
  Country: US (occurrence: US)
  Receive Date: 20140703
  Receipt Date: 20140703
  Transmission Date: 20150326
  Serious: Yes (Death, Hospitalization)
  Sender: FDA-Public Use
  Company Number: US-CUBIST PHARMACEUTICAL, INC.-2014CBST000981

PATIENT

DRUGS (24)
  1. LINEZOLID. [Concomitant]
     Active Substance: LINEZOLID
     Indication: ENTEROCOCCAL INFECTION
  2. RIFAMP [Concomitant]
     Indication: DEVICE RELATED INFECTION
     Dosage: UNK UNK, UNK
     Route: 065
  3. CUBICIN [Suspect]
     Active Substance: DAPTOMYCIN
     Indication: OFF LABEL USE
  4. DOXYCYCLINE. [Concomitant]
     Active Substance: DOXYCYCLINE
     Indication: DEVICE RELATED INFECTION
  5. VANCOMYCIN [Concomitant]
     Active Substance: VANCOMYCIN
     Indication: ACINETOBACTER INFECTION
     Dosage: UNK UNK, UNK
     Route: 042
  6. DOXYCYCLINE. [Concomitant]
     Active Substance: DOXYCYCLINE
     Indication: KLEBSIELLA INFECTION
  7. CUBICIN [Suspect]
     Active Substance: DAPTOMYCIN
     Indication: DEVICE RELATED INFECTION
     Dosage: UNK UNK, UNK
     Route: 042
  8. TIGECYCLINE [Concomitant]
     Active Substance: TIGECYCLINE
     Indication: ACINETOBACTER INFECTION
     Dosage: UNK UNK, UNK
     Route: 042
  9. DOXYCYCLINE. [Concomitant]
     Active Substance: DOXYCYCLINE
     Indication: ACINETOBACTER INFECTION
     Dosage: UNK UNK, UNK
     Route: 048
  10. OXACILLIN [Concomitant]
     Active Substance: OXACILLIN SODIUM
     Indication: STAPHYLOCOCCAL INFECTION
     Dosage: UNK UNK, UNK
     Route: 042
  11. CUBICIN [Suspect]
     Active Substance: DAPTOMYCIN
     Indication: ENTEROCOCCAL INFECTION
  12. CIPROFLOXACIN. [Concomitant]
     Active Substance: CIPROFLOXACIN
     Indication: ENTEROCOCCAL INFECTION
  13. LINEZOLID. [Concomitant]
     Active Substance: LINEZOLID
     Indication: DEVICE RELATED INFECTION
     Dosage: UNK UNK, UNK
     Route: 065
  14. RIFAMP [Concomitant]
     Indication: PROTEUS INFECTION
  15. TIGECYCLINE [Concomitant]
     Active Substance: TIGECYCLINE
     Indication: KLEBSIELLA INFECTION
  16. RIFAMP [Concomitant]
     Indication: ENTEROCOCCAL INFECTION
  17. VANCOMYCIN [Concomitant]
     Active Substance: VANCOMYCIN
     Indication: KLEBSIELLA INFECTION
  18. VANCOMYCIN [Concomitant]
     Active Substance: VANCOMYCIN
     Indication: DEVICE RELATED INFECTION
  19. TIGECYCLINE [Concomitant]
     Active Substance: TIGECYCLINE
     Indication: DEVICE RELATED INFECTION
  20. OXACILLIN [Concomitant]
     Active Substance: OXACILLIN SODIUM
     Indication: DEVICE RELATED INFECTION
  21. CIPROFLOXACIN. [Concomitant]
     Active Substance: CIPROFLOXACIN
     Indication: DEVICE RELATED INFECTION
     Dosage: UNK UNK, UNK
     Route: 042
  22. LINEZOLID. [Concomitant]
     Active Substance: LINEZOLID
     Indication: PROTEUS INFECTION
  23. CUBICIN [Suspect]
     Active Substance: DAPTOMYCIN
     Indication: PROTEUS INFECTION
  24. CIPROFLOXACIN. [Concomitant]
     Active Substance: CIPROFLOXACIN
     Indication: PROTEUS INFECTION

REACTIONS (8)
  - Death [Fatal]
  - Acinetobacter infection [Unknown]
  - Device related infection [Unknown]
  - Staphylococcal infection [Unknown]
  - White blood cell count decreased [Unknown]
  - Klebsiella infection [Unknown]
  - Staphylococcal bacteraemia [Unknown]
  - C-reactive protein decreased [Unknown]
